FAERS Safety Report 12416750 (Version 1)
Quarter: 2016Q2

REPORT INFORMATION
  Report Type: Spontaneous
  Country: US (occurrence: US)
  Receive Date: 20160530
  Receipt Date: 20160530
  Transmission Date: 20160815
  Serious: No
  Sender: FDA-Public Use
  Company Number: US-H14001-15-00026

PATIENT
  Sex: Male
  Weight: 113 kg

DRUGS (1)
  1. TESTOSTERONE CYPIONATE INJECTION USP [Suspect]
     Active Substance: TESTOSTERONE CYPIONATE
     Indication: BLOOD TESTOSTERONE DECREASED
     Route: 030
     Dates: start: 2014

REACTIONS (2)
  - Incorrect drug administration duration [Unknown]
  - Drug ineffective [Recovered/Resolved]
